FAERS Safety Report 8017092-3 (Version None)
Quarter: 2012Q1

REPORT INFORMATION
  Report Type: 
  Country: None (occurrence: None)
  Receive Date: 20120102
  Receipt Date: 20111229
  Transmission Date: 20120608
  Serious: Yes (Other)
  Sender: FDA-Public Use
  Company Number: PHHY2011TR113214

PATIENT
  Age: 40 Year
  Sex: Male

DRUGS (2)
  1. TEGRETOL [Concomitant]
     Dosage: UNK UKN, UNK
  2. ZOLEDRONOC ACID [Suspect]
     Dosage: UNK UKN, UNK
     Route: 042

REACTIONS (3)
  - PYREXIA [None]
  - EPILEPSY [None]
  - UVEITIS [None]
